FAERS Safety Report 15772185 (Version 1)
Quarter: 2018Q4

REPORT INFORMATION
  Report Type: Spontaneous
  Country: US (occurrence: US)
  Receive Date: 20181228
  Receipt Date: 20181228
  Transmission Date: 20190205
  Serious: Yes (Other)
  Sender: FDA-Public Use
  Company Number: US-SAKK-2018SA394657AA

PATIENT

DRUGS (1)
  1. ALDURAZYME [Suspect]
     Active Substance: LARONIDASE
     Route: 041

REACTIONS (4)
  - Intracranial pressure increased [Unknown]
  - Musculoskeletal stiffness [Unknown]
  - Corneal opacity [Unknown]
  - Blood immunoglobulin G increased [Not Recovered/Not Resolved]
